FAERS Safety Report 6201104-3 (Version None)
Quarter: 2009Q2

REPORT INFORMATION
  Report Type: 
  Country: None (occurrence: None)
  Receive Date: 20090526
  Receipt Date: 20090514
  Transmission Date: 20091009
  Serious: Yes (Death)
  Sender: FDA-Public Use
  Company Number: NL-BAYER-200920129GPV

PATIENT
  Age: 61 Year
  Sex: Male

DRUGS (2)
  1. CIPROFLOXACIN HCL [Suspect]
     Indication: INFECTION PROPHYLAXIS
     Dosage: UNIT DOSE: 500 MG
     Route: 048
     Dates: start: 20090504, end: 20090505
  2. THEOLAIR [Suspect]
     Indication: DRUG USE FOR UNKNOWN INDICATION
     Dosage: UNIT DOSE: 250 MG
     Route: 048

REACTIONS (1)
  - AORTIC DISSECTION RUPTURE [None]
